FAERS Safety Report 10768439 (Version 2)
Quarter: 2015Q1

REPORT INFORMATION
  Report Type: Spontaneous
  Country: PT (occurrence: PT)
  Receive Date: 20150206
  Receipt Date: 20150211
  Transmission Date: 20150721
  Serious: Yes (Other)
  Sender: FDA-Public Use
  Company Number: PT-AMGEN-PRTSP2015010522

PATIENT
  Age: 60 Year
  Sex: Male

DRUGS (8)
  1. NAPROXEN. [Concomitant]
     Active Substance: NAPROXEN
     Dosage: 500 MG, 2X/DAY
  2. ALLOPURINOL. [Concomitant]
     Active Substance: ALLOPURINOL
     Dosage: 300 MG, 1X/DAY
  3. FENOFIBRATE. [Concomitant]
     Active Substance: FENOFIBRATE
     Dosage: 267 MG, 1X/DAY
  4. NEBIVOLOL [Concomitant]
     Active Substance: NEBIVOLOL
     Dosage: 5 MG, 1X/DAY
  5. ENBREL [Suspect]
     Active Substance: ETANERCEPT
     Indication: ANKYLOSING SPONDYLITIS
     Dosage: UNK
     Route: 065
  6. METFORMIN [Concomitant]
     Active Substance: METFORMIN HYDROCHLORIDE
     Dosage: 850 MG, 2X/DAY
  7. PANTOPRAZOLE [Concomitant]
     Active Substance: PANTOPRAZOLE SODIUM
     Dosage: 20 MG, 1X/DAY
  8. ENBREL [Suspect]
     Active Substance: ETANERCEPT
     Indication: PSORIASIS
     Dosage: 50 MG, WEEKLY
     Route: 065
     Dates: start: 2009

REACTIONS (1)
  - Osteonecrosis [Unknown]

NARRATIVE: CASE EVENT DATE: 2013
